FAERS Safety Report 13214168 (Version 1)
Quarter: 2017Q1

REPORT INFORMATION
  Report Type: Report from Study
  Country: US (occurrence: US)
  Receive Date: 20170210
  Receipt Date: 20170210
  Transmission Date: 20170428
  Serious: Yes (Hospitalization)
  Sender: FDA-Public Use
  Company Number: US-BAYER-2017-021460

PATIENT
  Age: 84 Year
  Sex: Female

DRUGS (1)
  1. STIVARGA [Suspect]
     Active Substance: REGORAFENIB
     Indication: MIXED HEPATOCELLULAR CHOLANGIOCARCINOMA
     Dosage: DAILY DOSE 160 MG
     Route: 048
     Dates: start: 20170123, end: 20170127

REACTIONS (2)
  - Off label use [None]
  - Musculoskeletal disorder [Recovered/Resolved]

NARRATIVE: CASE EVENT DATE: 20170123
